FAERS Safety Report 16429347 (Version 1)
Quarter: 2019Q2

REPORT INFORMATION
  Report Type: Spontaneous
  Country: IT (occurrence: IT)
  Receive Date: 20190614
  Receipt Date: 20190614
  Transmission Date: 20190711
  Serious: Yes (Hospitalization)
  Sender: FDA-Public Use
  Company Number: IT-SUN PHARMACEUTICAL INDUSTRIES LTD-2019RR-210467

PATIENT
  Age: 47 Year
  Sex: Male

DRUGS (1)
  1. CLARITHROMYCIN. [Suspect]
     Active Substance: CLARITHROMYCIN
     Indication: HYPERPYREXIA
     Dosage: ()
     Route: 048
     Dates: start: 20170724

REACTIONS (2)
  - Lip oedema [Recovered/Resolved]
  - Drug hypersensitivity [Recovered/Resolved]

NARRATIVE: CASE EVENT DATE: 20170724
